FAERS Safety Report 8215972-7 (Version None)
Quarter: 2012Q1

REPORT INFORMATION
  Report Type: 
  Country: None (occurrence: None)
  Receive Date: 20120316
  Receipt Date: 20120307
  Transmission Date: 20120608
  Serious: Yes (Hospitalization)
  Sender: FDA-Public Use
  Company Number: US-ASTRAZENECA-2011SE67476

PATIENT
  Age: 61 Year
  Sex: Female

DRUGS (8)
  1. METOPROLOL SUCCINATE [Suspect]
     Route: 065
  2. CLONAZEPAM [Concomitant]
  3. TRIAMTERENE [Concomitant]
  4. LORATADINE [Concomitant]
  5. LISINOPRIL [Suspect]
     Route: 048
  6. ASPIRIN [Concomitant]
  7. TOPROL-XL [Suspect]
     Route: 048
  8. CALAN [Suspect]
     Route: 065

REACTIONS (10)
  - NAUSEA [None]
  - BLOOD PRESSURE INCREASED [None]
  - BLOOD PRESSURE FLUCTUATION [None]
  - PRESYNCOPE [None]
  - DRUG INEFFECTIVE [None]
  - DIZZINESS [None]
  - MULTIPLE ALLERGIES [None]
  - BRADYCARDIA [None]
  - DRUG DOSE OMISSION [None]
  - DRUG HYPERSENSITIVITY [None]
